FAERS Safety Report 10668865 (Version 2)
Quarter: 2015Q1

REPORT INFORMATION
  Report Type: Report from Study
  Country: BR (occurrence: BR)
  Receive Date: 20141222
  Receipt Date: 20150107
  Transmission Date: 20150720
  Serious: Yes (Hospitalization)
  Sender: FDA-Public Use
  Company Number: PHHY2014BR166843

PATIENT
  Age: 23 Year
  Sex: Female
  Weight: 65 kg

DRUGS (1)
  1. TEGRETOL [Suspect]
     Active Substance: CARBAMAZEPINE
     Indication: SEIZURE
     Dosage: 1 DF, QD (ONE TABLET, DAILY)
     Route: 048

REACTIONS (4)
  - Exposure during breast feeding [Unknown]
  - Seizure [Recovered/Resolved]
  - Blood pressure decreased [Unknown]
  - Maternal exposure during pregnancy [Unknown]
